FAERS Safety Report 4755264-1 (Version None)
Quarter: 2005Q3

REPORT INFORMATION
  Report Type: 
  Country: None (occurrence: None)
  Receive Date: 20050829
  Receipt Date: 20050607
  Transmission Date: 20060218
  Serious: Yes (Hospitalization, Disabling, Other)
  Sender: FDA-Public Use
  Company Number: US-MERCK-0506USA01425

PATIENT
  Age: 67 Year
  Sex: Male
  Weight: 120 kg

DRUGS (3)
  1. VIOXX [Suspect]
     Indication: POLYARTHRITIS
     Route: 048
     Dates: start: 19991101, end: 20040501
  2. ASPIRIN [Concomitant]
     Route: 065
     Dates: start: 19760101
  3. FUROSEMIDE [Concomitant]
     Indication: HYPERTENSION
     Route: 065
     Dates: start: 19950101

REACTIONS (14)
  - ARTHROPATHY [None]
  - CARDIOVASCULAR DISORDER [None]
  - CAROTID ARTERY OCCLUSION [None]
  - CATARACT [None]
  - CEREBROVASCULAR ACCIDENT [None]
  - DEEP VEIN THROMBOSIS [None]
  - INCOHERENT [None]
  - INJURY [None]
  - MULTI-ORGAN DISORDER [None]
  - MYOCARDIAL INFARCTION [None]
  - ORGAN FAILURE [None]
  - PAIN [None]
  - RENAL DISORDER [None]
  - THROMBOSIS [None]
